FAERS Safety Report 9913405 (Version 3)
Quarter: 2014Q2

REPORT INFORMATION
  Report Type: Spontaneous
  Country: US (occurrence: None)
  Receive Date: 20140214
  Receipt Date: 20140507
  Transmission Date: 20141212
  Serious: Yes (Life-Threatening, Hospitalization)
  Sender: FDA-Public Use
  Company Number: 2014SGN00080

PATIENT
  Age: 26 Year
  Sex: Female
  Weight: 98 kg

DRUGS (8)
  1. BRENTUXIMAB VEDOTIN [Suspect]
     Indication: HODGKIN^S DISEASE
     Route: 042
     Dates: start: 20140107, end: 20140127
  2. BENDAMUSTINE HYDROCHLORIDE [Suspect]
     Indication: HODGKIN^S DISEASE
     Dosage: 90 MG/M2, QCYCLE, INTRAVENOUS
     Route: 042
     Dates: start: 20140107, end: 20140128
  3. LORAZEPAM (LORAZEPAM) [Concomitant]
  4. FAMOTIDINE (FAMOTIDINE) [Concomitant]
  5. ONDANSETRON (ONDANSETRON) [Concomitant]
  6. LIDOCAINE W/PRILOCAINE (LIDOCAINE W/PRILOCAINE) [Concomitant]
  7. OTHER HORMONES [Concomitant]
  8. LEVOTHYROXINE (LEVOTHYROXINE SODIUM) [Concomitant]

REACTIONS (31)
  - Hypotension [None]
  - Nausea [None]
  - Vomiting [None]
  - Pyrexia [None]
  - Diarrhoea [None]
  - Fatigue [None]
  - Rash erythematous [None]
  - Rash pruritic [None]
  - Flushing [None]
  - Feeling cold [None]
  - Hypophagia [None]
  - Heart rate increased [None]
  - Chills [None]
  - Platelet count decreased [None]
  - Neutrophil count increased [None]
  - Blood potassium decreased [None]
  - Blood creatinine increased [None]
  - Hyperglycaemia [None]
  - Blood bilirubin increased [None]
  - Bilirubin conjugated increased [None]
  - Aspartate aminotransferase increased [None]
  - White blood cells urine [None]
  - Bacterial test positive [None]
  - White blood cell count increased [None]
  - Blood pH decreased [None]
  - Blood lactic acid increased [None]
  - Paraesthesia [None]
  - Blood bicarbonate decreased [None]
  - Infusion related reaction [None]
  - Dehydration [None]
  - Infection [None]
